FAERS Safety Report 5655988-8 (Version None)
Quarter: 2008Q1

REPORT INFORMATION
  Report Type: 
  Country: None (occurrence: None)
  Receive Date: 20080307
  Receipt Date: 20080226
  Transmission Date: 20080703
  Serious: Yes (Other)
  Sender: FDA-Public Use
  Company Number: US-PFIZER INC-2008018273

PATIENT
  Sex: Male

DRUGS (3)
  1. NEURONTIN [Suspect]
     Indication: BACK PAIN
  2. PERCOCET [Concomitant]
  3. FLEXERIL [Concomitant]

REACTIONS (2)
  - RASH [None]
  - RASH PUSTULAR [None]
